FAERS Safety Report 5500105-8 (Version None)
Quarter: 2007Q4

REPORT INFORMATION
  Report Type: 
  Country: None (occurrence: None)
  Receive Date: 20071024
  Receipt Date: 20070917
  Transmission Date: 20080405
  Serious: Yes (Death, Life-Threatening, Hospitalization)
  Sender: FDA-Public Use
  Company Number: 2007-01089

PATIENT
  Age: 78 Year
  Sex: Female

DRUGS (3)
  1. VELCADE [Suspect]
     Indication: MULTIPLE SCLEROSIS
     Dosage: 2.30 MG, INTRAVENOUS
     Route: 042
     Dates: start: 20070323, end: 20070406
  2. DEXAMETHASONE [Suspect]
     Indication: MULTIPLE SCLEROSIS
     Dosage: 20.00 MG, ORAL
     Route: 048
     Dates: start: 20070323, end: 20070402
  3. ROMIDEPSIN(DEPSIPEPTIDE) POWDER (EXCEPT [DPO]) [Suspect]
     Indication: MULTIPLE MYELOMA
     Dosage: 21.00 MG, INTRAVENOUS
     Route: 042
     Dates: start: 20070323, end: 20070406

REACTIONS (18)
  - AMYLOIDOMA [None]
  - BACTERIAL INFECTION [None]
  - BLOOD CULTURE POSITIVE [None]
  - CATHETER RELATED COMPLICATION [None]
  - CATHETER SITE ERYTHEMA [None]
  - CATHETER SITE RELATED REACTION [None]
  - CEREBRAL HAEMORRHAGE [None]
  - DISEASE PROGRESSION [None]
  - DYSARTHRIA [None]
  - FEBRILE INFECTION [None]
  - HEADACHE [None]
  - HYPERVISCOSITY SYNDROME [None]
  - LOSS OF CONSCIOUSNESS [None]
  - MULTIPLE MYELOMA [None]
  - PAIN [None]
  - PLASMA CELLS INCREASED [None]
  - SWELLING [None]
  - THROMBOCYTOPENIA [None]
